FAERS Safety Report 4610201-5 (Version None)
Quarter: 2005Q1

REPORT INFORMATION
  Report Type: 
  Country: None (occurrence: None)
  Receive Date: 20050315
  Receipt Date: 20050224
  Transmission Date: 20050727
  Serious: Yes (Death)
  Sender: FDA-Public Use
  Company Number: 2005-DE-00764GD

PATIENT
  Age: 19 Year
  Sex: Female
  Weight: 73 kg

DRUGS (4)
  1. MORPHINE SULFATE [Suspect]
     Indication: POSTOPERATIVE ANALGESIA
     Dosage: LIKELY 100 MG TO 115 MG OF MORPHINE BY A PATIENT-CONTROLLED ANALGESIA BUMP OVER A 7-HOUR-PERIOD (SEE
     Route: 042
  2. FENTANYL [Suspect]
     Indication: ANAESTHESIA
     Dosage: SEE IMAGE
  3. LIDOCAINE [Concomitant]
  4. EPINEPHRINE [Concomitant]

REACTIONS (8)
  - ANALGESIC DRUG LEVEL ABOVE THERAPEUTIC [None]
  - DEVICE FAILURE [None]
  - DRUG EXPOSURE DURING PREGNANCY [None]
  - MEDICATION ERROR [None]
  - PRURITUS [None]
  - PULSE ABSENT [None]
  - RESPIRATORY ARREST [None]
  - SNORING [None]
